FAERS Safety Report 5271550-3 (Version None)
Quarter: 2007Q1

REPORT INFORMATION
  Report Type: 
  Country: None (occurrence: None)
  Receive Date: 20070315
  Receipt Date: 20070306
  Transmission Date: 20070707
  Serious: Yes (Other)
  Sender: FDA-Public Use
  Company Number: 2006S1000148

PATIENT
  Age: 16 Day
  Sex: Female

DRUGS (4)
  1. NITRIC OXIDE [Suspect]
     Indication: LUNG DISORDER
     Dosage: 5 PPM; INH_GAS; INH
     Route: 055
     Dates: start: 20060712, end: 20060802
  2. NITRIC OXIDE [Suspect]
     Indication: PROPHYLAXIS
     Dosage: 5 PPM; INH_GAS; INH
     Route: 055
     Dates: start: 20060712, end: 20060802
  3. VANCOMYCIN [Concomitant]
  4. NETYLMYCIN [Concomitant]

REACTIONS (2)
  - APNOEA [None]
  - STAPHYLOCOCCAL SEPSIS [None]
